FAERS Safety Report 6128898-X (Version None)
Quarter: 2009Q1

REPORT INFORMATION
  Report Type: 
  Country: None (occurrence: None)
  Receive Date: 20090320
  Receipt Date: 20090310
  Transmission Date: 20090719
  Serious: No
  Sender: FDA-Public Use
  Company Number: C-09-0060-W

PATIENT
  Sex: Male

DRUGS (1)
  1. RANITIDINE [Suspect]
     Indication: GASTRITIS
     Dosage: 150MG, TWICE DAILY

REACTIONS (3)
  - ABDOMINAL DISTENSION [None]
  - ABDOMINAL PAIN UPPER [None]
  - DIZZINESS [None]
